FAERS Safety Report 9988522 (Version 2)
Quarter: 2014Q2

REPORT INFORMATION
  Report Type: Spontaneous
  Country: US (occurrence: US)
  Receive Date: 20140310
  Receipt Date: 20140522
  Transmission Date: 20141212
  Serious: No
  Sender: FDA-Public Use
  Company Number: US-BIOGENIDEC-2014BI017807

PATIENT
  Age: 62 Year
  Sex: Female

DRUGS (12)
  1. TECFIDERA [Suspect]
     Indication: MULTIPLE SCLEROSIS
     Route: 048
     Dates: start: 20140114
  2. ALPHAGAN P [Concomitant]
  3. BUPROPION HCL ER (SR) [Concomitant]
  4. CETIRIZINE HCL [Concomitant]
  5. CINNAMON PLUS CHROMIUM [Concomitant]
  6. DHEA [Concomitant]
  7. LEVOTHYROXINE SODIUM [Concomitant]
  8. METOPROLOL SUCCINATE ER [Concomitant]
  9. MOTRIN IB [Concomitant]
  10. PREDNISONE [Concomitant]
  11. TAMAZEPAM [Concomitant]
  12. VALSARTAN- HYDROCHLOROTHIAZIDE [Concomitant]

REACTIONS (2)
  - Alopecia [Unknown]
  - Mood swings [Unknown]
